FAERS Safety Report 5820905-4 (Version None)
Quarter: 2008Q3

REPORT INFORMATION
  Report Type: 
  Country: None (occurrence: None)
  Receive Date: 20080724
  Receipt Date: 20080220
  Transmission Date: 20090109
  Serious: No
  Sender: FDA-Public Use
  Company Number: US-BAYER-200810868BCC

PATIENT
  Age: 82 Year
  Sex: Female
  Weight: 61 kg

DRUGS (8)
  1. ALEVE [Suspect]
     Indication: HEADACHE
     Dates: start: 20080201
  2. ALEVE [Suspect]
     Dosage: UNIT DOSE: 220 MG
     Dates: start: 20080216
  3. TRIAMTERENE [Concomitant]
  4. LORAZEPAM [Concomitant]
  5. ISORBIDE [Concomitant]
  6. PREVACID [Concomitant]
  7. VYTORIN [Concomitant]
  8. ASPIRIN [Concomitant]

REACTIONS (1)
  - HEADACHE [None]
